FAERS Safety Report 6119779-6 (Version None)
Quarter: 2009Q1

REPORT INFORMATION
  Report Type: 
  Country: None (occurrence: None)
  Receive Date: 20090316
  Receipt Date: 20090305
  Transmission Date: 20090719
  Serious: Yes (Other)
  Sender: FDA-Public Use
  Company Number: FR-JNJFOC-20090301016

PATIENT
  Sex: Female

DRUGS (7)
  1. INTELENCE [Suspect]
     Route: 048
  2. INTELENCE [Suspect]
     Indication: HIV INFECTION
     Route: 048
  3. ABACAVIR [Suspect]
     Indication: HIV INFECTION
     Route: 048
  4. RALTEGRAVIR [Suspect]
     Indication: HIV INFECTION
     Route: 048
  5. LAMIVUDINE [Suspect]
     Indication: HIV INFECTION
     Route: 048
  6. TIPRANAVIR [Concomitant]
     Indication: HIV INFECTION
     Route: 048
  7. ENFUVIRTIDE [Concomitant]
     Indication: HIV INFECTION
     Route: 065

REACTIONS (3)
  - ANTIVIRAL DRUG LEVEL BELOW THERAPEUTIC [None]
  - CYTOLYTIC HEPATITIS [None]
  - OVERDOSE [None]
